FAERS Safety Report 8028469-4 (Version None)
Quarter: 2012Q1

REPORT INFORMATION
  Report Type: 
  Country: None (occurrence: None)
  Receive Date: 20120106
  Receipt Date: 20111228
  Transmission Date: 20120608
  Serious: Yes (Death)
  Sender: FDA-Public Use
  Company Number: JP-ROCHE-799915

PATIENT
  Sex: Male

DRUGS (6)
  1. LOXONIN [Concomitant]
     Indication: PREMEDICATION
     Dosage: 60 MG, SINGLE
  2. MABTHERA [Suspect]
     Indication: PRODUCT USED FOR UNKNOWN INDICATION
     Dosage: UNK
     Route: 042
  3. POLARAMINE [Concomitant]
     Indication: PREMEDICATION
     Dosage: 2 MG, SINGLE
  4. MABTHERA [Suspect]
     Dosage: UNK
     Route: 042
  5. ZEVALIN [Suspect]
     Indication: PRODUCT USED FOR UNKNOWN INDICATION
     Dosage: UNK, IN-111 ZEVALIN
     Route: 042
  6. ZEVALIN [Suspect]
     Dosage: UNK, Y-90 ZEVALIN
     Route: 042

REACTIONS (6)
  - HYPOALBUMINAEMIA [None]
  - GENERAL PHYSICAL HEALTH DETERIORATION [None]
  - JAUNDICE [None]
  - RENAL IMPAIRMENT [None]
  - CHOLANGIOLITIS [None]
  - FUNGAL INFECTION [None]
